FAERS Safety Report 7997256-5 (Version None)
Quarter: 2011Q4

REPORT INFORMATION
  Report Type: 
  Country: None (occurrence: None)
  Receive Date: 20111221
  Receipt Date: 20111213
  Transmission Date: 20120403
  Serious: Yes (Other)
  Sender: FDA-Public Use
  Company Number: CA-JNJFOC-20111207678

PATIENT
  Age: 20 Year
  Sex: Male

DRUGS (2)
  1. MINOXIDIL [Suspect]
     Route: 061
     Dates: start: 20111129, end: 20111213
  2. MINOXIDIL [Suspect]
     Indication: HAIR GROWTH ABNORMAL
     Dosage: 1/2 TO 1ML ONCE A DAY, TWO OR THREE TIMES A WEEK
     Route: 061
     Dates: start: 20111001, end: 20111129

REACTIONS (4)
  - UNDERDOSE [None]
  - INAPPROPRIATE SCHEDULE OF DRUG ADMINISTRATION [None]
  - HEART RATE INCREASED [None]
  - HYPERTENSION [None]
